FAERS Safety Report 19239536 (Version 1)
Quarter: 2021Q2

REPORT INFORMATION
  Report Type: Spontaneous
  Country: NO (occurrence: NO)
  Receive Date: 20210511
  Receipt Date: 20210511
  Transmission Date: 20210717
  Serious: Yes (Hospitalization, Other)
  Sender: FDA-Public Use
  Company Number: NO-SA-2021SA150758

PATIENT
  Age: 77 Year
  Sex: Female

DRUGS (18)
  1. EPILIM [Suspect]
     Active Substance: VALPROATE SODIUM
     Indication: ATRIAL FIBRILLATION
     Dosage: 5 MG, BID (5 MG MORNING AND EVENING)
     Route: 048
     Dates: start: 20210305
  2. MOVICOL [MACROGOL 4000;POTASSIUM CHLORIDE;SODIUM BICARBONATE;SODIUM CH [Concomitant]
     Indication: CONSTIPATION
     Dosage: 1 DF
     Route: 048
  3. NOVORAPID [Concomitant]
     Active Substance: INSULIN ASPART
     Indication: BLOOD GLUCOSE INCREASED
     Dosage: 1 DF(WHEN NEEDED)
     Route: 058
  4. MEDROL [Concomitant]
     Active Substance: METHYLPREDNISOLONE
     Indication: OEDEMA
     Dosage: 4 MG, TID (4 MG MORNING, 4 MG MIDDAY, 8 MG EVENING)
     Route: 048
  5. LIPITOR [Concomitant]
     Active Substance: ATORVASTATIN CALCIUM
     Indication: BLOOD CHOLESTEROL INCREASED
     Dosage: 20 MG (20 MG MORNING)
     Route: 048
  6. OXYNORM [Concomitant]
     Active Substance: OXYCODONE HYDROCHLORIDE
     Indication: PAIN
     Dosage: 1 DF, PRN
     Route: 048
  7. OXYCONTIN [Concomitant]
     Active Substance: OXYCODONE HYDROCHLORIDE
     Indication: PAIN
     Dosage: 10 MG, BID (10 MG, BID (1 TABLET MORNING AND EVENING))
     Route: 048
  8. METOPROLOL TARTRATE. [Concomitant]
     Active Substance: METOPROLOL TARTRATE
     Indication: PROPHYLAXIS
     Dosage: 75 MG
     Route: 048
  9. PIPERACILLIN AND TAZOBACTAM [Concomitant]
     Active Substance: PIPERACILLIN SODIUM\TAZOBACTAM SODIUM
     Indication: WOUND INFECTION
     Dosage: 1 DF, Q8H
     Route: 042
     Dates: start: 20210402
  10. PARACETS [Concomitant]
     Indication: PAIN
     Dosage: 1 G, TID (1 TABLET 3 TIMES PER DAY)
     Route: 048
  11. FURIX [FUROSEMIDE] [Concomitant]
     Active Substance: FUROSEMIDE
     Indication: POLYURIA
     Dosage: 20 MG, TID (2?0?1)
     Route: 048
  12. FURIX [FUROSEMIDE] [Concomitant]
     Active Substance: FUROSEMIDE
     Dosage: 40 MG (2?0?1)
     Route: 048
  13. KLEXANE [Suspect]
     Active Substance: ENOXAPARIN
     Indication: THROMBOSIS PROPHYLAXIS
     Dosage: 40 MG, QD  (40 MG EVENING)
     Route: 058
     Dates: start: 202012, end: 20210305
  14. KALIUMKLORID ORIFARM [Concomitant]
     Indication: MINERAL SUPPLEMENTATION
     Dosage: 1 DF
     Route: 048
  15. LETROZOL ORIFARM [Concomitant]
     Active Substance: LETROZOLE
     Indication: ADJUVANT THERAPY
     Dosage: 2 MG, QD (1 TABLET MORNING)
     Route: 048
  16. SOMAC [Concomitant]
     Active Substance: PANTOPRAZOLE SODIUM
     Indication: PROPHYLAXIS AGAINST GASTROINTESTINAL ULCER
     Dosage: 40 MG, QD (1 TABLET MORNING)
     Route: 048
  17. MEDROL [Concomitant]
     Active Substance: METHYLPREDNISOLONE
     Dosage: 8 MG, TID (4 MG MORNING, 4 MG MIDDAY, 8 MG EVENING)
     Route: 048
  18. FOLSYRE ORIFARM [Concomitant]
     Indication: VITAMIN SUPPLEMENTATION
     Dosage: 1 MG, QD (1 TABLET DAILY)
     Route: 048

REACTIONS (4)
  - Skin necrosis [Not Recovered/Not Resolved]
  - Cellulitis [Not Recovered/Not Resolved]
  - Skin necrosis [Not Recovered/Not Resolved]
  - Skin haemorrhage [Recovering/Resolving]

NARRATIVE: CASE EVENT DATE: 202012
